FAERS Safety Report 11969533 (Version 1)
Quarter: 2016Q1

REPORT INFORMATION
  Report Type: Spontaneous
  Country: GB (occurrence: GB)
  Receive Date: 20160128
  Receipt Date: 20160128
  Transmission Date: 20160526
  Serious: Yes (Life-Threatening)
  Sender: FDA-Public Use
  Company Number: GB-WATSON-2016-00895

PATIENT
  Sex: Male

DRUGS (7)
  1. MIDAZOLAM [Suspect]
     Active Substance: MIDAZOLAM\MIDAZOLAM HYDROCHLORIDE
     Indication: SEDATIVE THERAPY
     Dosage: UNK
     Route: 042
  2. LIDOCAINE (UNKNOWN) [Suspect]
     Active Substance: LIDOCAINE
     Indication: ANAESTHESIA PROCEDURE
     Dosage: UNK
     Route: 061
  3. TEICOPLANIN [Suspect]
     Active Substance: TEICOPLANIN
     Indication: PRODUCT USED FOR UNKNOWN INDICATION
     Dosage: UNK
     Route: 042
  4. BENDROFLUMETHIAZIDE [Concomitant]
     Active Substance: BENDROFLUMETHIAZIDE
     Indication: HYPERTENSION
     Dosage: UNK
     Route: 065
  5. BUPIVACAINE (UNKNOWN) [Suspect]
     Active Substance: BUPIVACAINE
     Indication: SPINAL ANAESTHESIA
     Dosage: UNK
     Route: 050
  6. CHLORHEXIDINE (UNKNOWN) [Suspect]
     Active Substance: CHLORHEXIDINE
     Indication: ANAESTHESIA PROCEDURE
     Dosage: UNK
     Route: 061
  7. DIAMORPHINE (UNKNOWN) [Suspect]
     Active Substance: DIACETYLMORPHINE
     Indication: SPINAL ANAESTHESIA
     Dosage: UNK
     Route: 050

REACTIONS (3)
  - Bronchospasm [Recovered/Resolved]
  - Loss of consciousness [Recovered/Resolved]
  - Hypotension [Recovered/Resolved]
